FAERS Safety Report 19457456 (Version 3)
Quarter: 2025Q1

REPORT INFORMATION
  Report Type: Spontaneous
  Country: JP (occurrence: JP)
  Receive Date: 20210624
  Receipt Date: 20250117
  Transmission Date: 20250409
  Serious: Yes (Other)
  Sender: SUNOVION
  Company Number: JP-DSPHARMA-2021DSP008735

PATIENT

DRUGS (3)
  1. LATUDA [Suspect]
     Active Substance: LURASIDONE HYDROCHLORIDE
     Indication: Bipolar disorder
     Dosage: 10 MG, QD
     Route: 048
     Dates: start: 20210521, end: 20210528
  2. NITRAZEPAM [Concomitant]
     Active Substance: NITRAZEPAM
     Indication: Insomnia
     Dosage: 10 MG, QD
     Route: 048
     Dates: start: 20210501
  3. MAGNESIUM OXIDE [Concomitant]
     Active Substance: MAGNESIUM OXIDE
     Indication: Constipation
     Dosage: 330 MG, TID
     Route: 048
     Dates: start: 20210528

REACTIONS (3)
  - Urinary retention [Recovered/Resolved]
  - Constipation [Recovered/Resolved]
  - Prescribed underdose [Unknown]

NARRATIVE: CASE EVENT DATE: 20210528
